FAERS Safety Report 6304565-4 (Version None)
Quarter: 2009Q3

REPORT INFORMATION
  Report Type: 
  Country: None (occurrence: None)
  Receive Date: 20090806
  Receipt Date: 20090728
  Transmission Date: 20100115
  Serious: Yes (Death)
  Sender: FDA-Public Use
  Company Number: TRP_06134_2009

PATIENT
  Sex: Male

DRUGS (2)
  1. INFERGEN [Suspect]
     Indication: HEPATITIS C
     Dosage: 15 UG 5X/WEEK SUBCUTANEOUS
     Route: 058
     Dates: start: 20081101
  2. MARINOL [Concomitant]

REACTIONS (7)
  - ALOPECIA [None]
  - BLOOD GLUCOSE INCREASED [None]
  - DRY SKIN [None]
  - RASH [None]
  - RED CELL DISTRIBUTION WIDTH INCREASED [None]
  - URINE KETONE BODY PRESENT [None]
  - WHITE BLOOD CELL COUNT DECREASED [None]
